FAERS Safety Report 13307321 (Version 1)
Quarter: 2017Q1

REPORT INFORMATION
  Report Type: Spontaneous
  Country: US (occurrence: US)
  Receive Date: 20170308
  Receipt Date: 20170308
  Transmission Date: 20170428
  Serious: No
  Sender: FDA-Public Use
  Company Number: US-PERRIGO-16US000734

PATIENT
  Sex: Male

DRUGS (2)
  1. NAPROXEN SODIUM. [Suspect]
     Active Substance: NAPROXEN SODIUM
     Indication: ACCIDENTAL EXPOSURE TO PRODUCT
     Dosage: 220 MG, QD
     Route: 048
     Dates: start: 20160118, end: 20160125
  2. NAPROXEN. [Concomitant]
     Active Substance: NAPROXEN
     Indication: MYALGIA
     Dosage: 220 MG, QD
     Route: 048
     Dates: start: 20160118, end: 20160125

REACTIONS (1)
  - Accidental exposure to product [Recovered/Resolved]

NARRATIVE: CASE EVENT DATE: 20160118
